FAERS Safety Report 19410087 (Version 1)
Quarter: 2021Q2

REPORT INFORMATION
  Report Type: Spontaneous
  Country: US (occurrence: US)
  Receive Date: 20210614
  Receipt Date: 20210614
  Transmission Date: 20210717
  Serious: Yes (Hospitalization, Other)
  Sender: FDA-Public Use
  Company Number: US-MSNLABS-2021MSNLIT00171

PATIENT

DRUGS (2)
  1. CAPECITABINE TABLETS 150MG [Suspect]
     Active Substance: CAPECITABINE
     Indication: PRODUCT USED FOR UNKNOWN INDICATION
     Route: 065
  2. URIDINE TRIACETATE [Interacting]
     Active Substance: URIDINE TRIACETATE
     Indication: TOXICITY TO VARIOUS AGENTS
     Route: 065

REACTIONS (2)
  - Accidental exposure to product by child [Unknown]
  - Toxicity to various agents [Unknown]
